FAERS Safety Report 4448628-7 (Version None)
Quarter: 2004Q3

REPORT INFORMATION
  Report Type: 
  Country: None (occurrence: None)
  Receive Date: 20040909
  Receipt Date: 20040909
  Transmission Date: 20050211
  Serious: Yes (Other)
  Sender: FDA-Public Use
  Company Number: None

PATIENT
  Sex: Male
  Weight: 54.8852 kg

DRUGS (2)
  1. DEFEROXAMINE 500MG HOSPIRA [Suspect]
     Indication: SIDEROBLASTIC ANAEMIA
     Dosage: 1000MG DAILY SUBCUTANEOUS
     Route: 058
     Dates: start: 20040708, end: 20040831
  2. DEFEROXAMINE 200MG HOSPIRA [Suspect]

REACTIONS (2)
  - INJECTION SITE ERYTHEMA [None]
  - INJECTION SITE URTICARIA [None]
